FAERS Safety Report 8417448-0 (Version None)
Quarter: 2012Q2

REPORT INFORMATION
  Report Type: 
  Country: None (occurrence: None)
  Receive Date: 20120606
  Receipt Date: 20120531
  Transmission Date: 20120825
  Serious: Yes (Hospitalization, Other)
  Sender: FDA-Public Use
  Company Number: PHHY2012US046751

PATIENT
  Age: 64 Year
  Sex: Male

DRUGS (4)
  1. ANTIHYPERTENSIVES [Concomitant]
  2. CITALOPRAM HYDROBROMIDE [Suspect]
     Dosage: 60 MG
  3. ARIPIPRAZOLE [Interacting]
     Dosage: 5 MG
  4. STATIN MEDICATIONS [Concomitant]

REACTIONS (20)
  - SEROTONIN SYNDROME [None]
  - AGITATION [None]
  - NAUSEA [None]
  - SOMNOLENCE [None]
  - TREMOR [None]
  - DRUG INTERACTION [None]
  - HYPERHIDROSIS [None]
  - DIZZINESS [None]
  - VERTIGO [None]
  - BLOOD PRESSURE FLUCTUATION [None]
  - URINARY RETENTION [None]
  - MYDRIASIS [None]
  - HYPERREFLEXIA [None]
  - MUSCLE CONTRACTIONS INVOLUNTARY [None]
  - CLONUS [None]
  - ATAXIA [None]
  - HALLUCINATION, VISUAL [None]
  - YAWNING [None]
  - COGWHEEL RIGIDITY [None]
  - DYSSTASIA [None]
